FAERS Safety Report 21487865 (Version 1)
Quarter: 2022Q4

REPORT INFORMATION
  Report Type: Spontaneous
  Country: US (occurrence: US)
  Receive Date: 20221020
  Receipt Date: 20221020
  Transmission Date: 20230112
  Serious: Yes (Other)
  Sender: FDA-Public Use
  Company Number: US-FreseniusKabi-FK202213998

PATIENT
  Age: 81 Year
  Sex: Female
  Weight: 48.9 kg

DRUGS (2)
  1. FULVESTRANT [Suspect]
     Active Substance: FULVESTRANT
     Indication: Breast cancer
     Dosage: ONE INJECTION PER GLUTEA?ONGOING?START APPROX ONE YEAR AGO
     Route: 030
  2. Keytruda infusions [Concomitant]
     Indication: Product used for unknown indication
     Dosage: LAST INFUSION ON 10 OCT 2022
     Route: 042
     Dates: end: 20221010

REACTIONS (5)
  - Benign neoplasm [Not Recovered/Not Resolved]
  - Dermatitis [Not Recovered/Not Resolved]
  - Musculoskeletal pain [Not Recovered/Not Resolved]
  - Sciatica [Not Recovered/Not Resolved]
  - Arthralgia [Not Recovered/Not Resolved]

NARRATIVE: CASE EVENT DATE: 20220801
